FAERS Safety Report 8104018-7 (Version None)
Quarter: 2012Q1

REPORT INFORMATION
  Report Type: 
  Country: None (occurrence: None)
  Receive Date: 20120201
  Receipt Date: 20120126
  Transmission Date: 20120608
  Serious: Yes (Other)
  Sender: FDA-Public Use
  Company Number: US-BAYER-2012-008356

PATIENT
  Age: 74 Year
  Sex: Female
  Weight: 117.91 kg

DRUGS (4)
  1. ALEVE (CAPLET) [Suspect]
     Indication: INFLAMMATION
     Dosage: 2 DF, BID
     Route: 048
     Dates: start: 20111223
  2. DIOVAN HCT [Concomitant]
  3. WELCHOL [Concomitant]
  4. VOLTAREN [Concomitant]

REACTIONS (3)
  - BLOOD PRESSURE INCREASED [None]
  - OEDEMA PERIPHERAL [None]
  - FLUID RETENTION [None]
